FAERS Safety Report 16499149 (Version 1)
Quarter: 2019Q3

REPORT INFORMATION
  Report Type: Spontaneous
  Country: US (occurrence: US)
  Receive Date: 20190701
  Receipt Date: 20190701
  Transmission Date: 20191004
  Serious: No
  Sender: FDA-Public Use
  Company Number: US-GLAXOSMITHKLINE-US2019115757

PATIENT
  Sex: Male

DRUGS (1)
  1. NICODERM CQ [Suspect]
     Active Substance: NICOTINE
     Indication: ELECTRONIC CIGARETTE USER
     Dosage: 21 MG, UNK

REACTIONS (7)
  - Application site swelling [Recovered/Resolved]
  - Application site pruritus [Recovering/Resolving]
  - Application site reaction [Not Recovered/Not Resolved]
  - Application site erythema [Recovered/Resolved]
  - Application site rash [Recovered/Resolved]
  - Application site discomfort [Not Recovered/Not Resolved]
  - Product use in unapproved indication [Unknown]
